FAERS Safety Report 15905519 (Version 1)
Quarter: 2019Q1

REPORT INFORMATION
  Report Type: Spontaneous
  Country: US (occurrence: US)
  Receive Date: 20190201
  Receipt Date: 20190201
  Transmission Date: 20190417
  Serious: Yes (Life-Threatening, Hospitalization, Other)
  Sender: FDA-Public Use
  Company Number: None

PATIENT
  Age: 55 Year
  Sex: Female
  Weight: 67.5 kg

DRUGS (7)
  1. LEVAQUIN GENERIC LEVOFLOXACIN 750 MG TABLETS JOHNSON+JOHNSON [Suspect]
     Active Substance: LEVOFLOXACIN
     Indication: MYCOBACTERIAL INFECTION
     Dosage: ?          QUANTITY:1 TABLET(S);?
     Route: 048
     Dates: start: 20161210, end: 20170130
  2. LEVAQUIN GENERIC LEVOFLOXACIN 750 MG TABLETS JOHNSON+JOHNSON [Suspect]
     Active Substance: LEVOFLOXACIN
     Indication: RHINITIS
     Dosage: ?          QUANTITY:1 TABLET(S);?
     Route: 048
     Dates: start: 20161210, end: 20170130
  3. LEVOTHYROXINE 150MCG QHS [Concomitant]
  4. ALA [Concomitant]
  5. VITAMIN B COMPLEX WITH C [Concomitant]
     Active Substance: ASCORBIC ACID\CALCIUM PANTOTHENATE\CYANOCOBALAMIN\NIACINAMIDE\PYRIDOXINE HYDROCHLORIDE\RIBOFLAVIN\THIAMINE MONONITRATE
  6. LEVAQUIN GENERIC LEVOFLOXACIN 750 MG TABLETS JOHNSON+JOHNSON [Suspect]
     Active Substance: LEVOFLOXACIN
     Indication: GINGIVAL ABSCESS
     Dosage: ?          QUANTITY:1 TABLET(S);?
     Route: 048
     Dates: start: 20161210, end: 20170130
  7. ZILOFT 200MG QHS [Concomitant]

REACTIONS (15)
  - Arrhythmia [None]
  - Toxicity to various agents [None]
  - Vision blurred [None]
  - Arthralgia [None]
  - Abdominal discomfort [None]
  - Dizziness [None]
  - Fall [None]
  - Ataxia [None]
  - Confusional state [None]
  - Limb injury [None]
  - Contusion [None]
  - Pain in extremity [None]
  - Acute psychosis [None]
  - Neuropsychiatric symptoms [None]
  - Economic problem [None]

NARRATIVE: CASE EVENT DATE: 20161214
